FAERS Safety Report 7306833-6 (Version None)
Quarter: 2011Q1

REPORT INFORMATION
  Report Type: 
  Country: None (occurrence: None)
  Receive Date: 20110121
  Receipt Date: 20101026
  Transmission Date: 20110831
  Serious: Yes (Hospitalization)
  Sender: FDA-Public Use
  Company Number: 2010AL000129

PATIENT

DRUGS (1)
  1. FOLOTYN [Suspect]

REACTIONS (1)
  - MUCOSAL INFLAMMATION [None]
